FAERS Safety Report 15184469 (Version 1)
Quarter: 2018Q3

REPORT INFORMATION
  Report Type: Spontaneous
  Country: US (occurrence: US)
  Receive Date: 20180723
  Receipt Date: 20180723
  Transmission Date: 20181010
  Serious: No
  Sender: FDA-Public Use
  Company Number: US-AMGEN-USASP2018079989

PATIENT
  Age: 68 Year
  Sex: Female

DRUGS (1)
  1. REPATHA [Suspect]
     Active Substance: EVOLOCUMAB
     Indication: PRODUCT USED FOR UNKNOWN INDICATION
     Dosage: 140 MG, QMO
     Route: 065
     Dates: start: 201803

REACTIONS (7)
  - Sneezing [Unknown]
  - Malaise [Unknown]
  - Off label use [Unknown]
  - Feeling of body temperature change [Unknown]
  - Muscle spasms [Unknown]
  - Peripheral swelling [Unknown]
  - Cough [Unknown]
